FAERS Safety Report 9736978 (Version 1)
Quarter: 2013Q4

REPORT INFORMATION
  Report Type: Spontaneous
  Country: US (occurrence: US)
  Receive Date: 20131206
  Receipt Date: 20131206
  Transmission Date: 20140711
  Serious: No
  Sender: FDA-Public Use
  Company Number: US-GILEAD-2009-0023012

PATIENT
  Sex: Female
  Weight: 89.81 kg

DRUGS (32)
  1. LETAIRIS [Suspect]
     Indication: PULMONARY ARTERIAL HYPERTENSION
     Route: 048
     Dates: start: 20080923
  2. VENTAVIS [Concomitant]
  3. REVATIO [Concomitant]
  4. ZOCOR [Concomitant]
  5. FOSINOPRIL [Concomitant]
  6. CLONIDINE HCL [Concomitant]
  7. AMLODIPINE [Concomitant]
  8. METOLAZONE [Concomitant]
  9. LASIX [Concomitant]
  10. ARANESP [Concomitant]
  11. ADVAIR [Concomitant]
  12. SPIRIVA [Concomitant]
  13. XOPENEX [Concomitant]
  14. OXYGEN [Concomitant]
  15. JANUVIA [Concomitant]
  16. GLIMEPIRIDE [Concomitant]
  17. COLCHICINE [Concomitant]
  18. ALLOPURINOL [Concomitant]
  19. RESTASIS [Concomitant]
  20. PRANDIN [Concomitant]
  21. ULTRAM [Concomitant]
  22. ZITHROMAX [Concomitant]
  23. NEURONTIN [Concomitant]
  24. ELAVIL [Concomitant]
  25. PHENOBARBITAL [Concomitant]
  26. LEVOXYL [Concomitant]
  27. PRILOSEC [Concomitant]
  28. BONIVA [Concomitant]
  29. DEEP SEA NASAL SPRAY [Concomitant]
  30. OPTIVE EYE DROPS [Concomitant]
  31. MAG-OX [Concomitant]
  32. VITAMIN D [Concomitant]

REACTIONS (1)
  - Anaemia [Unknown]
